FAERS Safety Report 9745265 (Version 2)
Quarter: 2013Q4

REPORT INFORMATION
  Report Type: Report from Study
  Country: DE (occurrence: DE)
  Receive Date: 20131211
  Receipt Date: 20131211
  Transmission Date: 20140711
  Serious: Yes (Hospitalization, Other)
  Sender: FDA-Public Use
  Company Number: DE-ABBVIE-13P-062-1105238-00

PATIENT
  Age: 28 Year
  Sex: Female

DRUGS (2)
  1. HUMIRA [Suspect]
     Indication: RHEUMATOID ARTHRITIS
     Route: 058
     Dates: start: 20080128, end: 20130318
  2. HUMIRA [Suspect]
     Dates: start: 20130726

REACTIONS (3)
  - Inflammation [Unknown]
  - Knee operation [Recovering/Resolving]
  - Arthroscopy [Unknown]
